FAERS Safety Report 5547947-0 (Version None)
Quarter: 2007Q4

REPORT INFORMATION
  Report Type: 
  Country: None (occurrence: None)
  Receive Date: 20071206
  Receipt Date: 20071125
  Transmission Date: 20080405
  Serious: Yes (Disabling)
  Sender: FDA-Public Use
  Company Number: 10E20071742

PATIENT
  Sex: Male

DRUGS (1)
  1. SOMATULINE DEPOT [Suspect]
     Indication: ACROMEGALY
     Dosage: 90MG MONTHLY SUBCUTANEOUSLY
     Route: 058

REACTIONS (5)
  - ABDOMINAL PAIN [None]
  - DIARRHOEA [None]
  - FEELING ABNORMAL [None]
  - IMPAIRED WORK ABILITY [None]
  - NAUSEA [None]
